FAERS Safety Report 5207592-3 (Version None)
Quarter: 2006Q4

REPORT INFORMATION
  Report Type: 
  Country: None (occurrence: None)
  Receive Date: 20061030
  Receipt Date: 20060822
  Transmission Date: 20070319
  Serious: No
  Sender: FDA-Public Use
  Company Number: 256263

PATIENT
  Age: 59 Year
  Sex: Female
  Weight: 78 kg

DRUGS (3)
  1. LEVEMIR [Suspect]
     Indication: INSULIN-REQUIRING TYPE II DIABETES MELLITUS
     Dosage: 16 IU QD SUBCUTANEOUS
     Route: 058
     Dates: start: 20060817
  2. METFORMIN HCL [Concomitant]
  3. STARLIX [Concomitant]

REACTIONS (1)
  - BLOOD GLUCOSE INCREASED [None]
